FAERS Safety Report 4342537-X (Version None)
Quarter: 2004Q2

REPORT INFORMATION
  Report Type: 
  Country: None (occurrence: None)
  Receive Date: 20040416
  Receipt Date: 20040405
  Transmission Date: 20050107
  Serious: Yes (Hospitalization)
  Sender: FDA-Public Use
  Company Number: 2004SE01568

PATIENT
  Age: 78 Year
  Sex: Female

DRUGS (8)
  1. ROSUVASTATIN [Suspect]
     Indication: CARDIAC FAILURE CONGESTIVE
     Dosage: 10 MG QD PO
     Route: 048
     Dates: start: 20040309, end: 20040315
  2. WARFARIN SODIUM [Suspect]
     Indication: CARDIAC FAILURE
     Dates: start: 20030701
  3. AMIODARONE HCL [Suspect]
     Indication: CARDIAC FAILURE
  4. CARVEDILOL [Concomitant]
  5. ENALAPRIL MALEATE [Concomitant]
  6. FUROSEMIDE [Concomitant]
  7. ALLOPURINOL TAB [Concomitant]
  8. NITRATES [Concomitant]

REACTIONS (7)
  - ALVEOLITIS [None]
  - DRUG INTERACTION [None]
  - HAEMOGLOBIN DECREASED [None]
  - HAEMOPTYSIS [None]
  - INTERNATIONAL NORMALISED RATIO INCREASED [None]
  - PLEURAL EFFUSION [None]
  - PULMONARY HAEMORRHAGE [None]
